FAERS Safety Report 5729791-4 (Version None)
Quarter: 2008Q2

REPORT INFORMATION
  Report Type: 
  Country: None (occurrence: None)
  Receive Date: 20080501
  Receipt Date: 20080418
  Transmission Date: 20081010
  Serious: Yes (Hospitalization)
  Sender: FDA-Public Use
  Company Number: 2008000921

PATIENT
  Age: 53 Year
  Sex: Male

DRUGS (4)
  1. ERLOTINIB(ERLOTINIB HCL)(TABLET)(ERLOTINIB HCL) [Suspect]
     Indication: PANCREATIC CARCINOMA
     Dosage: ORAL
     Route: 048
     Dates: start: 20080310
  2. BEVACIZUMAB [Suspect]
     Indication: PANCREATIC CARCINOMA
     Dates: start: 20080310
  3. XELODA [Suspect]
     Indication: PANCREATIC CARCINOMA
     Dates: start: 20080310
  4. GEMCITABINE [Suspect]
     Indication: PANCREATIC CARCINOMA

REACTIONS (4)
  - DEHYDRATION [None]
  - DUODENAL OBSTRUCTION [None]
  - HYPOTENSION [None]
  - RENAL IMPAIRMENT [None]
